FAERS Safety Report 21016629 (Version 4)
Quarter: 2023Q4

REPORT INFORMATION
  Report Type: Spontaneous
  Country: FR (occurrence: FR)
  Receive Date: 20220628
  Receipt Date: 20231023
  Transmission Date: 20240110
  Serious: Yes (Other)
  Sender: FDA-Public Use
  Company Number: FR-BIOGARAN-B22000913

PATIENT
  Sex: Male

DRUGS (171)
  1. ZOPICLONE [Suspect]
     Active Substance: ZOPICLONE
     Indication: Product used for unknown indication
     Dosage: 7.5 MILLIGRAM, QD (7.5 MG, QD)
     Route: 065
     Dates: start: 20201228
  2. ZOPICLONE [Suspect]
     Active Substance: ZOPICLONE
     Dosage: 7.5 MILLIGRAM, QD (7.5 MG, QD)
     Route: 065
     Dates: start: 20210930
  3. ZOPICLONE [Suspect]
     Active Substance: ZOPICLONE
     Dosage: 7.5 MILLIGRAM, QD (7.5 MG, QD)
     Route: 065
     Dates: start: 20220110
  4. ZOPICLONE [Suspect]
     Active Substance: ZOPICLONE
     Dosage: 7.5 MILLIGRAM, QD (7.5 MG, QD)
     Route: 065
     Dates: start: 20220121
  5. ZOPICLONE [Suspect]
     Active Substance: ZOPICLONE
     Dosage: 7.5 MILLIGRAM, QD (7.5 MG, QD)
     Route: 065
     Dates: start: 20220408
  6. TRAMADOL [Suspect]
     Active Substance: TRAMADOL\TRAMADOL HYDROCHLORIDE
     Indication: Product used for unknown indication
     Dosage: 50 MILLIGRAM, QD (50 MG, QD)
     Route: 065
     Dates: start: 20160616, end: 2016
  7. TRAMADOL [Suspect]
     Active Substance: TRAMADOL\TRAMADOL HYDROCHLORIDE
     Dosage: 3 DOSAGE FORM, QD (1 DOSAGE FORM, TID)
     Route: 065
     Dates: start: 20160704
  8. TRAMADOL [Suspect]
     Active Substance: TRAMADOL\TRAMADOL HYDROCHLORIDE
     Dosage: 3 DOSAGE FORM, QD (1 DOSAGE FORM, TID)
     Route: 065
     Dates: start: 20160722
  9. TRAMADOL [Suspect]
     Active Substance: TRAMADOL\TRAMADOL HYDROCHLORIDE
     Dosage: 1 DOSAGE FORM, TID
     Route: 065
     Dates: start: 20160818
  10. TRAMADOL [Suspect]
     Active Substance: TRAMADOL\TRAMADOL HYDROCHLORIDE
     Dosage: 3 DOSAGE FORM, QD (1 DOSAGE FORM, TID)
     Route: 065
     Dates: start: 20161004
  11. TRAMADOL [Suspect]
     Active Substance: TRAMADOL\TRAMADOL HYDROCHLORIDE
     Dosage: 2 DOSAGE FORM, QD (1 DOSAGE FORM, BID)
     Route: 065
     Dates: start: 20170529
  12. ACETAMINOPHEN [Suspect]
     Active Substance: ACETAMINOPHEN
     Indication: Product used for unknown indication
     Dosage: UNK
     Route: 065
     Dates: start: 20160616
  13. CYAMEMAZINE [Suspect]
     Active Substance: CYAMEMAZINE
     Indication: Product used for unknown indication
     Dosage: 0.5 DOSAGE FORM, QD (0.5 DOSAGE FORM, QD
     Route: 065
     Dates: start: 20171017
  14. CYAMEMAZINE [Suspect]
     Active Substance: CYAMEMAZINE
     Dosage: 25 MILLIGRAM, QD (25 MG, QD)
     Route: 065
     Dates: start: 20190222
  15. CYAMEMAZINE [Suspect]
     Active Substance: CYAMEMAZINE
     Dosage: 25 MILLIGRAM, QD (25 MG, QD)
     Route: 065
     Dates: start: 20190829
  16. CYAMEMAZINE [Suspect]
     Active Substance: CYAMEMAZINE
     Dosage: 30 GTT DROPS (30 DROPS)
     Route: 065
     Dates: start: 20210421
  17. CYAMEMAZINE [Suspect]
     Active Substance: CYAMEMAZINE
     Dosage: 25 MILLIGRAM, QD (25 MG, QD)
     Route: 065
     Dates: start: 20200619
  18. CYAMEMAZINE [Suspect]
     Active Substance: CYAMEMAZINE
     Dosage: 25 MILLIGRAM, QD (25 MG, QD)
     Route: 065
     Dates: start: 20220201
  19. CYAMEMAZINE [Suspect]
     Active Substance: CYAMEMAZINE
     Dosage: 20 MILLIGRAM, QD (20 MG, QD)
     Route: 065
     Dates: start: 20180523
  20. CYAMEMAZINE [Suspect]
     Active Substance: CYAMEMAZINE
     Dosage: 25 MILLIGRAM, QD (25 MG, QD)
     Route: 065
     Dates: start: 20210625
  21. CYAMEMAZINE [Suspect]
     Active Substance: CYAMEMAZINE
     Dosage: 25 MILLIGRAM, QD (25 MG, QD)
     Route: 065
     Dates: start: 20191121
  22. CYAMEMAZINE [Suspect]
     Active Substance: CYAMEMAZINE
     Dosage: 25 MILLIGRAM, QD (25 MG, QD)
     Route: 065
     Dates: start: 20201228
  23. CYAMEMAZINE [Suspect]
     Active Substance: CYAMEMAZINE
     Dosage: 25 MILLIGRAM, QD (25 MG, QD)
     Route: 065
     Dates: start: 20190520
  24. CYAMEMAZINE [Suspect]
     Active Substance: CYAMEMAZINE
     Dosage: 25 MILLIGRAM, QD (25 MG, QD
     Route: 065
     Dates: start: 20180426
  25. CYAMEMAZINE [Suspect]
     Active Substance: CYAMEMAZINE
     Dosage: 25 MILLIGRAM, QD (25 MG, QD
     Route: 065
     Dates: start: 20180828
  26. CYAMEMAZINE [Suspect]
     Active Substance: CYAMEMAZINE
     Dosage: 25 MILLIGRAM, QD (25 MG, QD
     Route: 065
     Dates: start: 20210917
  27. CYAMEMAZINE [Suspect]
     Active Substance: CYAMEMAZINE
     Dosage: 25 MILLIGRAM, QD (25 MG, QD
     Route: 065
     Dates: start: 20180615
  28. CYAMEMAZINE [Suspect]
     Active Substance: CYAMEMAZINE
     Dosage: 25 MILLIGRAM, QD (25 MG, QD
     Route: 065
     Dates: start: 20190307
  29. CYAMEMAZINE [Suspect]
     Active Substance: CYAMEMAZINE
     Dosage: 25 MILLIGRAM, QD (25 MG, QD
     Route: 065
     Dates: start: 20200504
  30. CYAMEMAZINE [Suspect]
     Active Substance: CYAMEMAZINE
     Dosage: 25 MILLIGRAM, QD (25 MG, QD
     Route: 065
     Dates: start: 20180109
  31. CYAMEMAZINE [Suspect]
     Active Substance: CYAMEMAZINE
     Dosage: 25 MILLIGRAM, QD (25 MG, QD)
     Route: 065
     Dates: start: 20200917
  32. CYAMEMAZINE [Suspect]
     Active Substance: CYAMEMAZINE
     Dosage: 25 MILLIGRAM, QD (25 MG, QD
     Route: 065
     Dates: start: 20181129
  33. CYAMEMAZINE [Suspect]
     Active Substance: CYAMEMAZINE
     Dosage: 25 MILLIGRAM, QD (25 MG, QD
     Route: 065
     Dates: start: 20220408
  34. CYAMEMAZINE [Suspect]
     Active Substance: CYAMEMAZINE
     Dosage: 25 MILLIGRAM, QD (25 MG, QD
     Route: 065
     Dates: start: 20180212
  35. CYAMEMAZINE [Suspect]
     Active Substance: CYAMEMAZINE
     Dosage: 25 MILLIGRAM, QD (25 MG, QD
     Route: 065
     Dates: start: 20210930
  36. CYAMEMAZINE [Suspect]
     Active Substance: CYAMEMAZINE
     Dosage: 25 MILLIGRAM, QD (25 MG, QD
     Route: 065
     Dates: start: 20200417
  37. CYAMEMAZINE [Suspect]
     Active Substance: CYAMEMAZINE
     Dosage: 25 MILLIGRAM, QD (25 MG, QD
     Route: 065
     Dates: start: 20200120
  38. CYAMEMAZINE [Suspect]
     Active Substance: CYAMEMAZINE
     Dosage: 25 MILLIGRAM, QD (25 MG, QD
     Route: 065
     Dates: start: 20180116
  39. CYAMEMAZINE [Suspect]
     Active Substance: CYAMEMAZINE
     Dosage: 25 MILLIGRAM, QD (25 MG, QD
     Route: 065
     Dates: start: 20220121
  40. CYAMEMAZINE [Suspect]
     Active Substance: CYAMEMAZINE
     Dosage: 25 MILLIGRAM, QD (25 MG, QD
     Route: 065
     Dates: start: 20180904
  41. CYAMEMAZINE [Suspect]
     Active Substance: CYAMEMAZINE
     Dosage: UNK
     Route: 065
  42. AMITRIPTYLINE HYDROCHLORIDE [Suspect]
     Active Substance: AMITRIPTYLINE HYDROCHLORIDE
     Indication: Product used for unknown indication
     Dosage: 25 MG, QD
     Route: 065
  43. AMITRIPTYLINE HYDROCHLORIDE [Suspect]
     Active Substance: AMITRIPTYLINE HYDROCHLORIDE
     Dosage: UNK UNK, QD (QD
     Route: 065
     Dates: start: 20200818
  44. AMITRIPTYLINE HYDROCHLORIDE [Suspect]
     Active Substance: AMITRIPTYLINE HYDROCHLORIDE
     Dosage: 1 DOSAGE FORM, QD (1 TABLET AT BEDTIME)
     Route: 048
     Dates: start: 20170111
  45. AMITRIPTYLINE HYDROCHLORIDE [Suspect]
     Active Substance: AMITRIPTYLINE HYDROCHLORIDE
     Dosage: 0.5 MG, QD
     Route: 048
     Dates: start: 20170104
  46. AMITRIPTYLINE HYDROCHLORIDE [Suspect]
     Active Substance: AMITRIPTYLINE HYDROCHLORIDE
     Dosage: 30 GTT DROPS (30 DROPS )
     Route: 065
     Dates: start: 20201228
  47. AMITRIPTYLINE HYDROCHLORIDE [Suspect]
     Active Substance: AMITRIPTYLINE HYDROCHLORIDE
     Dosage: 50 MILLIGRAM, QD (50 MG, QD  )
     Route: 065
     Dates: start: 20170330
  48. AMITRIPTYLINE HYDROCHLORIDE [Suspect]
     Active Substance: AMITRIPTYLINE HYDROCHLORIDE
     Dosage: 50 MILLIGRAM, QD (50 MG, QD  )
     Route: 065
     Dates: start: 20170330
  49. AMITRIPTYLINE HYDROCHLORIDE [Suspect]
     Active Substance: AMITRIPTYLINE HYDROCHLORIDE
     Dosage: 50 MILLIGRAM, QD (50 MG, QD  )
     Route: 065
  50. AMITRIPTYLINE HYDROCHLORIDE [Suspect]
     Active Substance: AMITRIPTYLINE HYDROCHLORIDE
     Dosage: 50 GRAM, QD (50 G, QD )
     Route: 065
     Dates: start: 20170320
  51. AMITRIPTYLINE HYDROCHLORIDE [Suspect]
     Active Substance: AMITRIPTYLINE HYDROCHLORIDE
     Dosage: 40 MILLIGRAM, QD (40 MG, QD )
     Route: 065
     Dates: start: 20201228
  52. AMITRIPTYLINE HYDROCHLORIDE [Suspect]
     Active Substance: AMITRIPTYLINE HYDROCHLORIDE
     Dosage: 100 MILLIGRAM, QD
     Route: 065
     Dates: start: 20180220
  53. AMITRIPTYLINE HYDROCHLORIDE [Suspect]
     Active Substance: AMITRIPTYLINE HYDROCHLORIDE
     Dosage: 40 MILLIGRAM, QD (40 MG, QD  )
     Route: 065
     Dates: start: 20200818
  54. AMITRIPTYLINE HYDROCHLORIDE [Suspect]
     Active Substance: AMITRIPTYLINE HYDROCHLORIDE
     Dosage: 30 GTT DROPS (30 DROPS )
     Route: 065
     Dates: start: 20220201
  55. AMITRIPTYLINE HYDROCHLORIDE [Suspect]
     Active Substance: AMITRIPTYLINE HYDROCHLORIDE
     Dosage: 30 GTT DROPS (30 DROPS )
     Route: 065
     Dates: start: 20220121
  56. AMITRIPTYLINE HYDROCHLORIDE [Suspect]
     Active Substance: AMITRIPTYLINE HYDROCHLORIDE
     Dosage: 30 GTT DROPS (30 DROPS )
     Route: 065
     Dates: start: 20220408
  57. CYMBALTA [Suspect]
     Active Substance: DULOXETINE HYDROCHLORIDE
     Indication: Product used for unknown indication
     Dosage: 30 GRAM, QD (30 G, QD  )
     Route: 065
     Dates: start: 20170418
  58. CYMBALTA [Suspect]
     Active Substance: DULOXETINE HYDROCHLORIDE
     Dosage: 120 MILLIGRAM, QD (60 MG, BID
     Route: 065
     Dates: start: 20210917
  59. CYMBALTA [Suspect]
     Active Substance: DULOXETINE HYDROCHLORIDE
     Dosage: 120 MILLIGRAM, QD (120 MG, QD
     Route: 065
     Dates: start: 20180109
  60. CYMBALTA [Suspect]
     Active Substance: DULOXETINE HYDROCHLORIDE
     Dosage: 120 MILLIGRAM, QD (120 MG, QD
     Route: 065
     Dates: start: 20190903
  61. CYMBALTA [Suspect]
     Active Substance: DULOXETINE HYDROCHLORIDE
     Dosage: 120 MILLIGRAM, QD (120 MG, QD
     Route: 065
     Dates: start: 20180904
  62. CYMBALTA [Suspect]
     Active Substance: DULOXETINE HYDROCHLORIDE
     Dosage: 60 MILLIGRAM, QD (60 MG, QD
     Route: 065
     Dates: start: 20170522
  63. CYMBALTA [Suspect]
     Active Substance: DULOXETINE HYDROCHLORIDE
     Dosage: 60 MILLIGRAM, QD (60 MG, QD
     Route: 065
     Dates: start: 20210625
  64. CYMBALTA [Suspect]
     Active Substance: DULOXETINE HYDROCHLORIDE
     Dosage: 120 MILLIGRAM, QD (60 MG, BID
     Route: 065
     Dates: start: 20220201
  65. CYMBALTA [Suspect]
     Active Substance: DULOXETINE HYDROCHLORIDE
     Dosage: 120 MILLIGRAM, QD (60 MG, BID
     Route: 065
     Dates: start: 20200917
  66. CYMBALTA [Suspect]
     Active Substance: DULOXETINE HYDROCHLORIDE
     Dosage: 60 MILLIGRAM, QD (60 MG, QD)
     Route: 065
     Dates: start: 20170904
  67. CYMBALTA [Suspect]
     Active Substance: DULOXETINE HYDROCHLORIDE
     Dosage: 120 MILLIGRAM, QD (120 MG, QD)
     Route: 065
     Dates: start: 20181129
  68. CYMBALTA [Suspect]
     Active Substance: DULOXETINE HYDROCHLORIDE
     Dosage: 120 MILLIGRAM, QD (120 MG, QD)
     Route: 065
     Dates: start: 20180116
  69. CYMBALTA [Suspect]
     Active Substance: DULOXETINE HYDROCHLORIDE
     Dosage: 120 MILLIGRAM (120 MG)
     Route: 065
     Dates: start: 20200417
  70. CYMBALTA [Suspect]
     Active Substance: DULOXETINE HYDROCHLORIDE
     Dosage: 120 MILLIGRAM, QD (60 MG, BID)
     Route: 065
     Dates: start: 20200120
  71. CYMBALTA [Suspect]
     Active Substance: DULOXETINE HYDROCHLORIDE
     Dosage: 120 MILLIGRAM, QD (60 MG, BID)
     Route: 065
     Dates: start: 20210421
  72. CYMBALTA [Suspect]
     Active Substance: DULOXETINE HYDROCHLORIDE
     Dosage: 120 MILLIGRAM (120 MG)
     Route: 065
     Dates: start: 20200619
  73. CYMBALTA [Suspect]
     Active Substance: DULOXETINE HYDROCHLORIDE
     Dosage: 120 MILLIGRAM, QD (120 MG, QD)
     Route: 065
     Dates: start: 20180523
  74. CYMBALTA [Suspect]
     Active Substance: DULOXETINE HYDROCHLORIDE
     Dosage: 120 MILLIGRAM, QD (120 MG, QD)
     Route: 065
     Dates: start: 20191121
  75. CYMBALTA [Suspect]
     Active Substance: DULOXETINE HYDROCHLORIDE
     Dosage: 120 MILLIGRAM, QD (60 MG, BID)
     Route: 065
     Dates: start: 20210930
  76. CYMBALTA [Suspect]
     Active Substance: DULOXETINE HYDROCHLORIDE
     Dosage: 120 MILLIGRAM, QD (60 MG, BID)
     Route: 065
     Dates: start: 20220121
  77. CYMBALTA [Suspect]
     Active Substance: DULOXETINE HYDROCHLORIDE
     Dosage: 120 MILLIGRAM, QD (120 MG, QD)
     Route: 065
     Dates: start: 20180426
  78. CYMBALTA [Suspect]
     Active Substance: DULOXETINE HYDROCHLORIDE
     Dosage: 120 MILLIGRAM, QD (120 MG, QD)
     Route: 065
     Dates: start: 20180615
  79. CYMBALTA [Suspect]
     Active Substance: DULOXETINE HYDROCHLORIDE
     Dosage: 60 MILLIGRAM, QD (60 MG, QD)
     Route: 065
     Dates: start: 20171017
  80. CYMBALTA [Suspect]
     Active Substance: DULOXETINE HYDROCHLORIDE
     Dosage: 120 MILLIGRAM, QD (120 MG, QD)
     Route: 065
     Dates: start: 20190222
  81. CYMBALTA [Suspect]
     Active Substance: DULOXETINE HYDROCHLORIDE
     Dosage: 120 MILLIGRAM, QD (120 MG, QD)
     Route: 065
     Dates: start: 20180220
  82. CYMBALTA [Suspect]
     Active Substance: DULOXETINE HYDROCHLORIDE
     Dosage: 120 MILLIGRAM, QD (120 MG, QD
     Route: 065
     Dates: start: 20181129
  83. CYMBALTA [Suspect]
     Active Substance: DULOXETINE HYDROCHLORIDE
     Dosage: 120 MILLIGRAM, QD (120 MG, QD)
     Route: 065
     Dates: start: 20190307
  84. CYMBALTA [Suspect]
     Active Substance: DULOXETINE HYDROCHLORIDE
     Dosage: 120 MILLIGRAM, QD (120 MG, QD)
     Route: 065
     Dates: start: 20180420
  85. CYMBALTA [Suspect]
     Active Substance: DULOXETINE HYDROCHLORIDE
     Dosage: 120 MILLIGRAM, QD (120 MG, QD)
     Route: 065
     Dates: start: 20190520
  86. CYMBALTA [Suspect]
     Active Substance: DULOXETINE HYDROCHLORIDE
     Dosage: 120 MILLIGRAM, QD (120 MG, QD)
     Route: 065
     Dates: start: 20190829
  87. CYMBALTA [Suspect]
     Active Substance: DULOXETINE HYDROCHLORIDE
     Dosage: 120 MILLIGRAM, QD (60 MG, BID)
     Route: 065
     Dates: start: 20201228
  88. CYMBALTA [Suspect]
     Active Substance: DULOXETINE HYDROCHLORIDE
     Dosage: 1 DOSAGE FORM, QD (1 DOSAGE FORM, QD
     Route: 065
     Dates: start: 20170810
  89. CYMBALTA [Suspect]
     Active Substance: DULOXETINE HYDROCHLORIDE
     Dosage: 120 MILLIGRAM, QD (120 MG, QD)
     Route: 065
     Dates: start: 20180212
  90. CYMBALTA [Suspect]
     Active Substance: DULOXETINE HYDROCHLORIDE
     Dosage: 120 MILLIGRAM (120 MG)
     Route: 065
     Dates: start: 20200504
  91. CYMBALTA [Suspect]
     Active Substance: DULOXETINE HYDROCHLORIDE
     Dosage: 120 MILLIGRAM, QD (120 MG, QD)
     Route: 065
     Dates: start: 20180828
  92. CYMBALTA [Suspect]
     Active Substance: DULOXETINE HYDROCHLORIDE
     Dosage: 120 MILLIGRAM, QD (60 MG, BID))
     Route: 065
     Dates: start: 20220408
  93. PROPRANOLOL [Suspect]
     Active Substance: PROPRANOLOL HYDROCHLORIDE
     Indication: Product used for unknown indication
     Dosage: 40 MILLIGRAM, QD (0.5-1 DOSAGE FORM IN MORNING)
     Route: 065
     Dates: start: 20201228
  94. PROPRANOLOL [Suspect]
     Active Substance: PROPRANOLOL HYDROCHLORIDE
     Dosage: 40 MILLIGRAM, QD(0.5-1 DOSAGE FORM IN MORNING)
     Route: 065
     Dates: start: 20210917
  95. PROPRANOLOL [Suspect]
     Active Substance: PROPRANOLOL HYDROCHLORIDE
     Dosage: 40 MILLIGRAM, QD (40 MG, QD)
     Route: 065
     Dates: start: 20220221
  96. PROPRANOLOL [Suspect]
     Active Substance: PROPRANOLOL HYDROCHLORIDE
     Dosage: 1 DOSAGE FORM, QD (1 TABLET IN THE MORNING)
     Route: 065
     Dates: start: 20220201
  97. TOPIRAMATE [Suspect]
     Active Substance: TOPIRAMATE
     Indication: Product used for unknown indication
     Dosage: 30 MILLIGRAM, QD (15 MG, BID)
     Route: 065
     Dates: start: 20200120
  98. CHLORPROMAZINE [Suspect]
     Active Substance: CHLORPROMAZINE
     Indication: Product used for unknown indication
     Dosage: 30 GTT DROPS (30 DROPS )
     Route: 065
     Dates: start: 20210421
  99. CHLORPROMAZINE [Suspect]
     Active Substance: CHLORPROMAZINE
     Dosage: 1 DOSAGE FORM, HS
     Route: 065
     Dates: start: 20181129
  100. CHLORPROMAZINE [Suspect]
     Active Substance: CHLORPROMAZINE
     Dosage: 1 DOSAGE FORM, PM
     Route: 065
     Dates: start: 20220121
  101. CHLORPROMAZINE [Suspect]
     Active Substance: CHLORPROMAZINE
     Dosage: 1 DOSAGE FORM, PM (1 TABLET IN THE EVENING)
     Route: 065
     Dates: start: 20190307
  102. CHLORPROMAZINE [Suspect]
     Active Substance: CHLORPROMAZINE
     Dosage: 1 DOSAGE FORM,QD/1 DOSG FORM AT BEDTIME AR 2
     Route: 065
     Dates: start: 20190829
  103. CHLORPROMAZINE [Suspect]
     Active Substance: CHLORPROMAZINE
     Dosage: 1 DOSAGE FORM,QD(1 DOSG FORM AT BEDTIME AR 2 FOIS
     Route: 065
     Dates: start: 20190520
  104. CHLORPROMAZINE [Suspect]
     Active Substance: CHLORPROMAZINE
     Dosage: 1 DOSAGE FORM IN EVENING.ORDONNANCE A R 2/
     Route: 065
     Dates: start: 20210625
  105. CHLORPROMAZINE [Suspect]
     Active Substance: CHLORPROMAZINE
     Dosage: 0.5 DOSAGE FORM, QD (0.5 TABLET AT BEDTIME)
     Route: 065
     Dates: start: 20171017
  106. CHLORPROMAZINE [Suspect]
     Active Substance: CHLORPROMAZINE
     Dosage: QD, UNKNOWN DOSAGE AT BEDTIME
     Route: 065
     Dates: start: 20180426
  107. CHLORPROMAZINE [Suspect]
     Active Substance: CHLORPROMAZINE
     Dosage: 25 MILLIGRAM, QD/ IN THE EVENING A R 3/FOIS
     Route: 065
     Dates: start: 20200619
  108. CHLORPROMAZINE [Suspect]
     Active Substance: CHLORPROMAZINE
     Dosage: 25 MILLIGRAM, QD, IN THE EVENING
     Route: 065
     Dates: start: 20200504
  109. CHLORPROMAZINE [Suspect]
     Active Substance: CHLORPROMAZINE
     Dosage: 1 DOSAGE FORM, HS
     Route: 065
     Dates: start: 20180523
  110. CHLORPROMAZINE [Suspect]
     Active Substance: CHLORPROMAZINE
     Dosage: 1 DOSAGE FORM, PM
     Route: 065
     Dates: start: 20220408
  111. CHLORPROMAZINE [Suspect]
     Active Substance: CHLORPROMAZINE
     Dosage: 1 DOSAGE FORM, HS
     Route: 065
     Dates: start: 20180615
  112. CHLORPROMAZINE [Suspect]
     Active Substance: CHLORPROMAZINE
     Dosage: 25 MILLIGRAM, PM
     Route: 065
     Dates: start: 20200120
  113. CHLORPROMAZINE [Suspect]
     Active Substance: CHLORPROMAZINE
     Dosage: UNK, AR 6 MOIS
     Route: 065
     Dates: start: 20190903
  114. CHLORPROMAZINE [Suspect]
     Active Substance: CHLORPROMAZINE
     Dosage: 1 DOSAGE FORM, PM
     Route: 065
     Dates: start: 20210917
  115. CHLORPROMAZINE [Suspect]
     Active Substance: CHLORPROMAZINE
     Dosage: 25 MILLIGRAM, PM
     Route: 065
     Dates: start: 20200417
  116. CHLORPROMAZINE [Suspect]
     Active Substance: CHLORPROMAZINE
     Dosage: 1 DOSAGE FORM AT BEDTIME AR 3 FOIS
     Route: 065
     Dates: start: 20190222
  117. CHLORPROMAZINE [Suspect]
     Active Substance: CHLORPROMAZINE
     Dosage: 1 DOSAGE FORM, PM
     Route: 065
     Dates: start: 20220201
  118. CHLORPROMAZINE [Suspect]
     Active Substance: CHLORPROMAZINE
     Dosage: 1 DOSAGE FORM, PM
     Route: 065
     Dates: start: 20191121
  119. CHLORPROMAZINE [Suspect]
     Active Substance: CHLORPROMAZINE
     Dosage: 1 DOSAGE FORM, PM
     Route: 065
     Dates: start: 20210930
  120. CHLORPROMAZINE [Suspect]
     Active Substance: CHLORPROMAZINE
     Dosage: 1 DOSAGE FORM, HS
     Route: 065
     Dates: start: 20180212
  121. CHLORPROMAZINE [Suspect]
     Active Substance: CHLORPROMAZINE
     Dosage: UNK, PM
     Route: 065
     Dates: start: 20180116
  122. CHLORPROMAZINE [Suspect]
     Active Substance: CHLORPROMAZINE
     Dosage: 1 DOSAGE FORM, HS
     Route: 065
     Dates: start: 20180904
  123. CHLORPROMAZINE [Suspect]
     Active Substance: CHLORPROMAZINE
     Dosage: 1 DOSAGE FORM, PM
     Route: 065
     Dates: start: 20201228
  124. CHLORPROMAZINE [Suspect]
     Active Substance: CHLORPROMAZINE
     Dosage: 1 DOSAGE FORM, PM
     Route: 065
     Dates: start: 20180828
  125. CHLORPROMAZINE [Suspect]
     Active Substance: CHLORPROMAZINE
     Dosage: 1 DOSAGE FORM, HS
     Route: 065
     Dates: start: 20180109
  126. CHLORPROMAZINE [Suspect]
     Active Substance: CHLORPROMAZINE
     Dosage: 1 DOSAGE FORM
     Route: 065
     Dates: start: 20200917
  127. ESOMEPRAZOLE [Suspect]
     Active Substance: ESOMEPRAZOLE
     Indication: Product used for unknown indication
     Dosage: 20 MILLIGRAM, QD (20 MG, QD)
     Route: 065
     Dates: start: 20170104
  128. PIROXICAM BETADEX [Suspect]
     Active Substance: PIROXICAM BETADEX
     Indication: Product used for unknown indication
     Dosage: 1 DOSAGE FORM, QD (1 TABLET/DAY)
     Route: 065
     Dates: start: 20160704
  129. PIROXICAM BETADEX [Suspect]
     Active Substance: PIROXICAM BETADEX
     Dosage: 1 DOSAGE FORM, QD (1 TABLET/DAY)
     Route: 065
     Dates: start: 20160722
  130. LAMALINE (ACETAMINOPHEN\CAFFEINE\OPIUM) [Suspect]
     Active Substance: ACETAMINOPHEN\CAFFEINE\OPIUM
     Indication: Product used for unknown indication
     Dosage: 4 DOSAGE FORM, QD (4 CAPSULES/DAY)
     Route: 065
     Dates: start: 20161208
  131. DAFALGAN [Suspect]
     Active Substance: ACETAMINOPHEN
     Indication: Product used for unknown indication
     Dosage: 3 GRAM, QD (1 G, TID)
     Route: 065
     Dates: start: 20160704
  132. DAFALGAN [Suspect]
     Active Substance: ACETAMINOPHEN
     Dosage: 3 GRAM, QD (1 G, TID)
     Route: 065
     Dates: start: 20160722
  133. DAFALGAN [Suspect]
     Active Substance: ACETAMINOPHEN
     Dosage: 3 GRAM, QD (1 G, TID)
     Route: 065
     Dates: start: 20160818
  134. DAFALGAN [Suspect]
     Active Substance: ACETAMINOPHEN
     Dosage: 3 GRAM, QD (1 G, TID)
     Route: 065
     Dates: start: 20170529
  135. ACUPAN [Suspect]
     Active Substance: NEFOPAM HYDROCHLORIDE
     Indication: Product used for unknown indication
     Dosage: 60 MILLIGRAM, QD (20 MG, TID)/ 3 DF, QD
     Route: 065
     Dates: start: 20180904
  136. ACUPAN [Suspect]
     Active Substance: NEFOPAM HYDROCHLORIDE
     Dosage: 60 MILLIGRAM, QD (20 MG, TID)
     Route: 065
     Dates: start: 20180523
  137. ACUPAN [Suspect]
     Active Substance: NEFOPAM HYDROCHLORIDE
     Dosage: 60 MILLIGRAM, QD (20 MG, TID)/ 3 DF, QD
     Route: 065
     Dates: start: 20180828
  138. ACUPAN [Suspect]
     Active Substance: NEFOPAM HYDROCHLORIDE
     Dosage: 60 MILLIGRAM, QD (20 MG, TID)/ 3 DF, QD
     Route: 065
     Dates: start: 20180426
  139. ACUPAN [Suspect]
     Active Substance: NEFOPAM HYDROCHLORIDE
     Dosage: 60 MILLIGRAM, QD (20 MG, TID)/ 3 DF, QD
     Route: 065
     Dates: start: 20170904
  140. ACUPAN [Suspect]
     Active Substance: NEFOPAM HYDROCHLORIDE
     Dosage: 60 MILLIGRAM, QD (20 MG, TID)/ 3 DF, QD
     Route: 065
     Dates: start: 20200504
  141. ACUPAN [Suspect]
     Active Substance: NEFOPAM HYDROCHLORIDE
     Dosage: (20 MG, TID)/ 1 AMPOULE 3X4 TIMES A DAY)
     Route: 065
     Dates: start: 20200120
  142. ACUPAN [Suspect]
     Active Substance: NEFOPAM HYDROCHLORIDE
     Dosage: 60 MILLIGRAM, QD (20 MG, TID)/ 3 DF, QD
     Route: 065
     Dates: start: 20190307
  143. ACUPAN [Suspect]
     Active Substance: NEFOPAM HYDROCHLORIDE
     Dosage: 60 MILLIGRAM, QD (20 MG, TID)/ 3DF, QD
     Route: 065
     Dates: start: 20180212
  144. ACUPAN [Suspect]
     Active Substance: NEFOPAM HYDROCHLORIDE
     Dosage: 60 MILLIGRAM, QD (20 MG, TID/ 3 DF, QD
     Route: 065
     Dates: start: 20181129
  145. ACUPAN [Suspect]
     Active Substance: NEFOPAM HYDROCHLORIDE
     Dosage: 60 MILLIGRAM, QD (20 MG, TID)/ 3 DF, QD
     Route: 065
     Dates: start: 20180109
  146. ACUPAN [Suspect]
     Active Substance: NEFOPAM HYDROCHLORIDE
     Dosage: 60 MILLIGRAM, QD (20 MG, TID)/ 3 DF, QD
     Route: 065
     Dates: start: 20190903
  147. ACUPAN [Suspect]
     Active Substance: NEFOPAM HYDROCHLORIDE
     Dosage: 60 MILLIGRAM, QD (20 MG, TID)/ 3 DF, QD
     Route: 065
     Dates: start: 20190520
  148. ACUPAN [Suspect]
     Active Substance: NEFOPAM HYDROCHLORIDE
     Dosage: 60 MILLIGRAM, QD (20 MG, TID)/ 3 DF, QD
     Route: 065
     Dates: start: 20200917
  149. ACETAMINOPHEN\CODEINE PHOSPHATE [Suspect]
     Active Substance: ACETAMINOPHEN\CODEINE PHOSPHATE
     Indication: Product used for unknown indication
     Dosage: UNK, NOT ASSOCIATE WITH DOLIPRANE
     Route: 065
     Dates: start: 20160622
  150. AUGMENTIN [Suspect]
     Active Substance: AMOXICILLIN\CLAVULANATE POTASSIUM
     Indication: Product used for unknown indication
     Dosage: 3 DOSAGE FORM, QD (1 DOSAGE FORM, TID)
     Route: 065
     Dates: start: 20160622
  151. TRAMADOL HYDROCHLORIDE [Suspect]
     Active Substance: TRAMADOL HYDROCHLORIDE
     Indication: Product used for unknown indication
     Dosage: 3 DOSAGE FORM, QD
     Route: 065
     Dates: start: 20160704
  152. TRAMADOL HYDROCHLORIDE [Suspect]
     Active Substance: TRAMADOL HYDROCHLORIDE
     Dosage: 3 DOSAGE FORM, QD
     Route: 065
     Dates: start: 20160722
  153. TRAMADOL HYDROCHLORIDE [Suspect]
     Active Substance: TRAMADOL HYDROCHLORIDE
     Dosage: 3 DOSAGE FORM, QD
     Route: 065
     Dates: start: 20161004
  154. TRAMADOL HYDROCHLORIDE [Suspect]
     Active Substance: TRAMADOL HYDROCHLORIDE
     Dosage: 3 DOSAGE FORM, QD
     Route: 065
     Dates: start: 20160818
  155. TRAMADOL HYDROCHLORIDE [Suspect]
     Active Substance: TRAMADOL HYDROCHLORIDE
     Dosage: 2 DOSAGE FORM, QD
     Route: 065
     Dates: start: 20170529
  156. AMOXICILLIN\CLAVULANIC ACID [Suspect]
     Active Substance: AMOXICILLIN\CLAVULANIC ACID
     Indication: Product used for unknown indication
     Dosage: 2 DOSAGE FORM, QD (1 DOSAGE FORM, BID)
     Route: 065
     Dates: start: 20160616
  157. AMOXICILLIN\CLAVULANIC ACID [Suspect]
     Active Substance: AMOXICILLIN\CLAVULANIC ACID
     Dosage: 3 DOSAGE FORM, QD(1 DF MORNING, NOON AND EVENING)
     Route: 065
     Dates: start: 20160616
  158. METHYLPREDNISOLONE [Suspect]
     Active Substance: METHYLPREDNISOLONE
     Indication: Product used for unknown indication
     Dosage: 4 DOSAGE FORM, QW
     Route: 065
     Dates: start: 20160617
  159. KETOPROFEN [Suspect]
     Active Substance: KETOPROFEN
     Indication: Product used for unknown indication
     Dosage: 100 MILLIGRAM, QD (50 MG, BID)
     Route: 065
  160. KETOPROFEN [Suspect]
     Active Substance: KETOPROFEN
     Dosage: 2 DOSAGE FORM, QD
     Route: 065
     Dates: start: 20170104
  161. INDOMETHACIN [Suspect]
     Active Substance: INDOMETHACIN
     Indication: Product used for unknown indication
     Dosage: 150 MILLIGRAM, QD (75 MG, BID)
     Route: 065
  162. INDOMETHACIN [Suspect]
     Active Substance: INDOMETHACIN
     Dosage: 2 DOSAGE FORM, QD
     Route: 065
     Dates: start: 20170330
  163. DOLIPRANE [Suspect]
     Active Substance: ACETAMINOPHEN
     Indication: Product used for unknown indication
     Dosage: 8 DOSAGE FORM, QD (2 DOSAGE FORM, QID)
     Route: 065
     Dates: start: 20160622
  164. DOLIPRANE [Suspect]
     Active Substance: ACETAMINOPHEN
     Dosage: 4 GRAM, QD (1 G, QID)
     Route: 065
     Dates: start: 20200818
  165. DOLIPRANE [Suspect]
     Active Substance: ACETAMINOPHEN
     Dosage: 1 GRAM, QD (1 G, QD)
     Route: 065
     Dates: start: 20200917
  166. DOLIPRANE [Suspect]
     Active Substance: ACETAMINOPHEN
     Dosage: 4 GRAM, QD (1 G, QID)
     Route: 065
     Dates: start: 20201228
  167. DOLIPRANE [Suspect]
     Active Substance: ACETAMINOPHEN
     Dosage: 4 GRAM, QD (1 G, QID)
     Route: 065
     Dates: start: 20210421
  168. DOLIPRANE [Suspect]
     Active Substance: ACETAMINOPHEN
     Dosage: 4 GRAM, QD (1 G, QID)
     Route: 065
     Dates: start: 20210917
  169. DOLIPRANE [Suspect]
     Active Substance: ACETAMINOPHEN
     Dosage: 4 GRAM, QD (1 G, QID)
     Route: 065
     Dates: start: 20220201
  170. DOLIPRANE [Suspect]
     Active Substance: ACETAMINOPHEN
     Dosage: 6 GRAM, MONTHLY (1 G 6 TIMES A MONTH)
     Route: 065
     Dates: start: 20200917
  171. SACCHAROMYCES CEREVISIAE [Concomitant]
     Active Substance: SACCHAROMYCES CEREVISIAE
     Indication: Product used for unknown indication
     Dosage: UNK
     Route: 065
     Dates: start: 20160622

REACTIONS (4)
  - Depression [Not Recovered/Not Resolved]
  - White matter lesion [Unknown]
  - Diffuse axonal injury [Not Recovered/Not Resolved]
  - Amyotrophy [Not Recovered/Not Resolved]
